FAERS Safety Report 13594439 (Version 1)
Quarter: 2017Q2

REPORT INFORMATION
  Report Type: Spontaneous
  Country: GB (occurrence: GB)
  Receive Date: 20170530
  Receipt Date: 20170530
  Transmission Date: 20170830
  Serious: Yes (Hospitalization)
  Sender: FDA-Public Use
  Company Number: GB-TEVA-771695ACC

PATIENT
  Age: 88 Year
  Sex: Male

DRUGS (4)
  1. SPIRONOLACTONE. [Suspect]
     Active Substance: SPIRONOLACTONE
  2. FUROSEMIDE. [Suspect]
     Active Substance: FUROSEMIDE
  3. BISOPROLOL FUMARATE. [Suspect]
     Active Substance: BISOPROLOL FUMARATE
  4. DIGOXIN. [Suspect]
     Active Substance: DIGOXIN

REACTIONS (1)
  - Fall [Recovering/Resolving]
